FAERS Safety Report 8984056 (Version 1)
Quarter: 2012Q4

REPORT INFORMATION
  Report Type: Spontaneous
  Country: US (occurrence: None)
  Receive Date: 20121213
  Receipt Date: 20121213
  Transmission Date: 20130627
  Serious: Yes (Other)
  Sender: FDA-Public Use
  Company Number: BB12-355-AE

PATIENT
  Sex: Female
  Weight: 13.15 kg

DRUGS (4)
  1. OXCARBAZEPINE [Suspect]
     Indication: SEIZURES
     Route: 048
     Dates: start: 201208
  2. RIBOFLAVIN CAPSULES [Concomitant]
  3. SINGULAIR CHEWABLE [Concomitant]
  4. CETIRIZINE [Concomitant]

REACTIONS (5)
  - Drug ineffective [None]
  - Epilepsy [None]
  - Aggression [None]
  - Hypophagia [None]
  - Anger [None]
